FAERS Safety Report 7873468-6 (Version None)
Quarter: 2011Q4

REPORT INFORMATION
  Report Type: 
  Country: None (occurrence: None)
  Receive Date: 20111027
  Receipt Date: 20111012
  Transmission Date: 20120403
  Serious: No
  Sender: FDA-Public Use
  Company Number: 2135225-2011-00101

PATIENT
  Age: 59 Year
  Sex: Female

DRUGS (2)
  1. AETHOXYSKLEROL [Suspect]
     Indication: SCLEROTHERAPY
     Dosage: INTRAARTERIALLY
     Route: 013
  2. AETHOXYSKLEROL [Suspect]
     Indication: VARICOSE VEIN
     Dosage: INTRAARTERIALLY
     Route: 013

REACTIONS (5)
  - PERIPHERAL ARTERIAL REOCCLUSION [None]
  - DRUG INEFFECTIVE [None]
  - FOOT AMPUTATION [None]
  - PALLOR [None]
  - GANGRENE [None]
